FAERS Safety Report 14081558 (Version 1)
Quarter: 2017Q4

REPORT INFORMATION
  Report Type: Spontaneous
  Country: US (occurrence: None)
  Receive Date: 20171012
  Receipt Date: 20171012
  Transmission Date: 20180321
  Serious: Yes (Disabling)
  Sender: FDA-Public Use
  Company Number: None

PATIENT
  Age: 38 Year
  Sex: Female
  Weight: 68.2 kg

DRUGS (1)
  1. LEVOFLOXACIN. [Suspect]
     Active Substance: LEVOFLOXACIN
     Indication: DEEP VEIN THROMBOSIS
     Route: 048
     Dates: start: 20151120, end: 20151120

REACTIONS (1)
  - Anaemia [None]

NARRATIVE: CASE EVENT DATE: 20151120
